FAERS Safety Report 7812165-X (Version None)
Quarter: 2011Q4

REPORT INFORMATION
  Report Type: 
  Country: None (occurrence: None)
  Receive Date: 20111013
  Receipt Date: 20111003
  Transmission Date: 20120403
  Serious: Yes (Hospitalization, Other)
  Sender: FDA-Public Use
  Company Number: PHEH2011US00553

PATIENT
  Sex: Male
  Weight: 55.8 kg

DRUGS (1)
  1. GLEEVEC [Suspect]
     Indication: LEUKAEMIA
     Dosage: 100 MG, QID
     Route: 048
     Dates: start: 20020101

REACTIONS (8)
  - DIARRHOEA [None]
  - WEIGHT DECREASED [None]
  - HYPOPITUITARISM [None]
  - VOMITING [None]
  - BLOOD SODIUM DECREASED [None]
  - NAUSEA [None]
  - HYPONATRAEMIA [None]
  - PITUITARY TUMOUR BENIGN [None]
